FAERS Safety Report 6715148-6 (Version None)
Quarter: 2010Q2

REPORT INFORMATION
  Report Type: 
  Country: None (occurrence: None)
  Receive Date: 20100507
  Receipt Date: 20100428
  Transmission Date: 20101027
  Serious: Yes (Death, Hospitalization)
  Sender: FDA-Public Use
  Company Number: JP-MPIJNJ-2010-02440

PATIENT

DRUGS (3)
  1. VELCADE [Suspect]
     Indication: MULTIPLE MYELOMA
     Dosage: 1.3 MG/M2, UNK
     Route: 042
     Dates: start: 20100108, end: 20100319
  2. DECADRON                           /00016002/ [Suspect]
     Indication: MULTIPLE MYELOMA
     Dosage: 20 MG, UNK
     Dates: start: 20100108, end: 20100116
  3. DECADRON                           /00016002/ [Suspect]
     Dosage: 20 MG, UNK
     Dates: start: 20100319, end: 20100320

REACTIONS (2)
  - DISEASE PROGRESSION [None]
  - HEPATITIS B [None]
